FAERS Safety Report 8849001 (Version 1)
Quarter: 2012Q4

REPORT INFORMATION
  Report Type: 
  Country: US (occurrence: US)
  Receive Date: 20121019
  Receipt Date: 20121019
  Transmission Date: 20130627
  Serious: Yes (Hospitalization, Other)
  Sender: FDA-Public Use
  Company Number: US-ELI_LILLY_AND_COMPANY-US201210002227

PATIENT
  Age: 31 Year
  Sex: Female

DRUGS (4)
  1. ZYPREXA [Suspect]
     Indication: SCHIZOPHRENIA, PARANOID TYPE
     Dosage: 15 mg, bid
     Route: 048
  2. ZYPREXA [Suspect]
     Indication: SCHIZOPHRENIA, PARANOID TYPE
     Dosage: 10 mg, prn
     Route: 030
  3. CLOZARIL [Concomitant]
     Indication: SCHIZOPHRENIA
     Dosage: 1 DF, unknown
  4. SEROQUEL [Concomitant]
     Indication: SCHIZOPHRENIA
     Dosage: 1 DF, unknown

REACTIONS (8)
  - Psychotic disorder [Unknown]
  - Neuroleptic malignant syndrome [Recovered/Resolved]
  - Starvation [Unknown]
  - Malnutrition [Unknown]
  - Headache [Unknown]
  - Back pain [Unknown]
  - Prescribed overdose [Unknown]
  - Drug ineffective [Unknown]
